FAERS Safety Report 7196893-8 (Version None)
Quarter: 2010Q4

REPORT INFORMATION
  Report Type: 
  Country: None (occurrence: None)
  Receive Date: 20101223
  Receipt Date: 20101213
  Transmission Date: 20110411
  Serious: Yes (Hospitalization)
  Sender: FDA-Public Use
  Company Number: JP-PFIZER INC-2010172845

PATIENT
  Sex: Female
  Weight: 46 kg

DRUGS (28)
  1. CAMPTO [Suspect]
     Indication: COLON CANCER
     Dosage: 180 MG/M2, UNK
     Route: 041
     Dates: start: 20100406, end: 20101116
  2. CALCIUM LEVOFOLINATE [Suspect]
     Indication: COLON CANCER
     Dosage: 200 MG/M2, UNK
     Route: 041
     Dates: start: 20100406, end: 20101116
  3. FLUOROURACIL [Suspect]
     Indication: COLON CANCER
     Dosage: 400 MG/M2
     Route: 040
     Dates: start: 20100406, end: 20101116
  4. FLUOROURACIL [Suspect]
     Dosage: 2400 MG/M2, UNK
     Route: 041
     Dates: start: 20100406, end: 20101116
  5. AVASTIN [Suspect]
     Indication: COLON CANCER
     Dosage: 5 MG/KG, UNK
     Route: 041
     Dates: start: 20100406, end: 20101116
  6. KYTRIL [Concomitant]
     Indication: PREMEDICATION
     Dosage: 3 MG, UNK
     Route: 041
     Dates: start: 20100406, end: 20101116
  7. DECADRON #1 [Concomitant]
     Indication: PREMEDICATION
     Dosage: 6.6 MG, UNK
     Route: 041
     Dates: start: 20100406, end: 20101116
  8. ATROPINE SULFATE [Concomitant]
     Indication: PREMEDICATION
     Dosage: 0.5 MG, UNK
     Route: 041
     Dates: start: 20100406, end: 20101116
  9. EMEND [Concomitant]
     Dosage: 125-80-125-80MG
     Route: 048
     Dates: start: 20100406, end: 20101118
  10. DECADRON [Concomitant]
     Dosage: 2 MG, 2X/DAY
     Route: 048
     Dates: start: 20100407, end: 20101118
  11. MYSLEE [Concomitant]
     Indication: INSOMNIA
     Dosage: 10 MG, UNK
     Route: 048
  12. FAMOTIDINE [Concomitant]
     Dosage: 20 MG, 2X/DAY
     Route: 048
  13. GASCON [Concomitant]
     Dosage: 40 MG, 3X/DAY
     Route: 048
  14. MARZULENE S [Concomitant]
     Dosage: 0.67 G, 3X/DAY
     Route: 048
  15. MAGNESIUM OXIDE [Concomitant]
     Dosage: 500 MG, 3X/DAY
     Route: 048
  16. NAUZELIN [Concomitant]
     Dosage: UNK
     Route: 048
     Dates: end: 20101106
  17. NAUZELIN [Concomitant]
     Route: 054
  18. LOXONIN [Concomitant]
     Route: 048
  19. DEPAS [Concomitant]
     Indication: INSOMNIA
     Dosage: 0.5 MG, UNK
     Route: 048
  20. OXYCODONE HYDROCHLORIDE [Concomitant]
     Route: 048
  21. OXYCONTIN [Concomitant]
     Dosage: 40 MG, 2X/DAY
     Route: 048
  22. AMOXAN [Concomitant]
     Dosage: 25 MG, UNK
     Route: 048
  23. RIVOTRIL [Concomitant]
     Dosage: 0.5 MG, UNK
     Route: 048
  24. HACHIAZULE [Concomitant]
     Route: 002
  25. CRAVIT [Concomitant]
     Indication: PYREXIA
     Dosage: 500 MG, UNK
     Route: 048
     Dates: start: 20101128, end: 20101201
  26. ZITHROMAX [Concomitant]
     Indication: PYREXIA
     Dosage: 500 MG, UNK
     Route: 048
     Dates: start: 20101204, end: 20101206
  27. PRIMPERAN TAB [Concomitant]
     Dosage: 10 MG, UNK
     Route: 042
     Dates: start: 20101206, end: 20101206
  28. PRIMPERAN TAB [Concomitant]
     Dosage: UNK
     Route: 048
     Dates: start: 20101207

REACTIONS (1)
  - PNEUMONIA [None]
